FAERS Safety Report 11247336 (Version 1)
Quarter: 2015Q3

REPORT INFORMATION
  Report Type: Spontaneous
  Country: GB (occurrence: None)
  Receive Date: 20150706
  Receipt Date: 20150706
  Transmission Date: 20151125
  Serious: Yes (Other)
  Sender: FDA-Public Use
  Company Number: 2015-001332

PATIENT
  Age: 62 Year
  Sex: Male
  Weight: 68 kg

DRUGS (8)
  1. AZATHIOPRINE (AZATHIOPRINE) [Suspect]
     Active Substance: AZATHIOPRINE
     Indication: COLITIS ULCERATIVE
     Route: 048
     Dates: start: 20110801, end: 20150101
  2. MESALAZINE (MESALAZINE) [Suspect]
     Active Substance: MESALAMINE
     Indication: COLITIS ULCERATIVE
     Route: 048
     Dates: start: 20110801, end: 20140730
  3. INFLIXIMAB (INFLIXIMAB) [Suspect]
     Active Substance: INFLIXIMAB
     Indication: COLITIS ULCERATIVE
     Route: 042
     Dates: start: 20130801
  4. SIMVASTATIN. [Concomitant]
     Active Substance: SIMVASTATIN
  5. LERCANIDIPINE [Concomitant]
     Active Substance: LERCANIDIPINE
  6. MEBEVERINE [Concomitant]
     Active Substance: MEBEVERINE
  7. BISOPROLOL [Concomitant]
     Active Substance: BISOPROLOL
  8. PANTOPRAZOLE [Concomitant]
     Active Substance: PANTOPRAZOLE SODIUM

REACTIONS (4)
  - Hodgkin^s disease [None]
  - Lymphoproliferative disorder [None]
  - Epstein-Barr virus associated lymphoma [None]
  - Interstitial lung disease [None]

NARRATIVE: CASE EVENT DATE: 20150612
